FAERS Safety Report 20894425 (Version 1)
Quarter: 2022Q2

REPORT INFORMATION
  Report Type: Spontaneous
  Country: US (occurrence: None)
  Receive Date: 20220527
  Receipt Date: 20220527
  Transmission Date: 20220721
  Serious: No
  Sender: FDA-Public Use
  Company Number: None

PATIENT
  Age: 30 Year
  Sex: Male

DRUGS (1)
  1. DUPIXENT [Suspect]
     Active Substance: DUPILUMAB
     Indication: Dermatitis atopic
     Dosage: 300MG EVERY OTHER WEEK SUBQ?
     Route: 058
     Dates: start: 20220201

REACTIONS (3)
  - Device defective [None]
  - Product leakage [None]
  - Incorrect dose administered [None]

NARRATIVE: CASE EVENT DATE: 20220526
